FAERS Safety Report 6084018-1 (Version None)
Quarter: 2009Q1

REPORT INFORMATION
  Report Type: 
  Country: None (occurrence: None)
  Receive Date: 20090219
  Receipt Date: 20090106
  Transmission Date: 20090719
  Serious: Yes (Other)
  Sender: FDA-Public Use
  Company Number: US-PFIZER INC-2009152209

PATIENT
  Sex: Female
  Weight: 67.585 kg

DRUGS (5)
  1. CHANTIX [Suspect]
     Indication: SMOKING CESSATION THERAPY
     Dates: start: 20070101
  2. INSULIN [Concomitant]
     Dosage: UNK
  3. DRUG, UNSPECIFIED [Concomitant]
     Dosage: UNK
  4. TRAZODONE [Concomitant]
     Dosage: UNK
  5. ANTIHYPERTENSIVES [Concomitant]
     Dosage: UNK

REACTIONS (3)
  - DEPRESSION [None]
  - HOMICIDAL IDEATION [None]
  - SUICIDAL IDEATION [None]
